FAERS Safety Report 21786546 (Version 1)
Quarter: 2022Q4

REPORT INFORMATION
  Report Type: Report from Study
  Country: BR (occurrence: None)
  Receive Date: 20221228
  Receipt Date: 20221228
  Transmission Date: 20230113
  Serious: Yes (Other)
  Sender: FDA-Public Use
  Company Number: BR-Merck Healthcare KGaA-9374893

PATIENT
  Age: 55 Year
  Sex: Male

DRUGS (4)
  1. REBIF [Suspect]
     Active Substance: INTERFERON BETA-1A
     Indication: Multiple sclerosis
     Dates: start: 199808
  2. REBIF [Suspect]
     Active Substance: INTERFERON BETA-1A
     Dates: start: 20000901, end: 20070202
  3. REBIF [Suspect]
     Active Substance: INTERFERON BETA-1A
     Dates: start: 20070203, end: 20070303
  4. REBIF [Suspect]
     Active Substance: INTERFERON BETA-1A
     Dates: start: 20071001, end: 20201130

REACTIONS (2)
  - Myocardial infarction [Unknown]
  - Cardiac disorder [Unknown]

NARRATIVE: CASE EVENT DATE: 20100101
